FAERS Safety Report 14115994 (Version 2)
Quarter: 2017Q4

REPORT INFORMATION
  Report Type: Spontaneous
  Country: CA (occurrence: CA)
  Receive Date: 20171023
  Receipt Date: 20171212
  Transmission Date: 20180321
  Serious: Yes (Other)
  Sender: FDA-Public Use
  Company Number: CA-CELLTRION HEALTHCARE JAPAN K.K.-2017CA011722

PATIENT

DRUGS (11)
  1. EURO D [Concomitant]
     Dosage: UNK
  2. CALCIUM [Concomitant]
     Active Substance: CALCIUM
     Dosage: UNK
  3. MEZAVANT [Concomitant]
     Active Substance: MESALAMINE
     Dosage: UNK
     Dates: start: 201610
  4. FERRAN [Concomitant]
     Dosage: UNK UNK, 2X/DAY
     Route: 065
  5. SALOFALK                           /00000301/ [Concomitant]
     Active Substance: MESALAMINE
     Dosage: UNK
     Dates: start: 201610
  6. INFLECTRA [Suspect]
     Active Substance: INFLIXIMAB-DYYB
     Indication: CROHN^S DISEASE
     Dosage: 540 MG,CYCLIC THEN EVERY 4 WEEKS
     Route: 042
     Dates: start: 20170606, end: 2017
  7. ZOPLICONE [Concomitant]
     Active Substance: ZOPICLONE
     Dosage: UNK
  8. PREDNISONE. [Suspect]
     Active Substance: PREDNISONE
     Indication: PRODUCT USED FOR UNKNOWN INDICATION
     Dosage: UNK
     Route: 065
     Dates: start: 201705, end: 201708
  9. ALESSE 28 [Concomitant]
     Active Substance: ETHINYL ESTRADIOL\LEVONORGESTREL
     Dosage: UNK
  10. OXAZEPAM. [Concomitant]
     Active Substance: OXAZEPAM
     Dosage: UNK
  11. INFLECTRA [Suspect]
     Active Substance: INFLIXIMAB-DYYB
     Dosage: 10 MG/KG, CYCLIC (EVERY 4 WEEKS)
     Route: 065
     Dates: start: 201708

REACTIONS (5)
  - Condition aggravated [Unknown]
  - Product use issue [Not Recovered/Not Resolved]
  - Condition aggravated [Unknown]
  - Drug effect incomplete [Unknown]
  - Anaemia [Unknown]

NARRATIVE: CASE EVENT DATE: 2017
